FAERS Safety Report 21288910 (Version 1)
Quarter: 2022Q3

REPORT INFORMATION
  Report Type: Spontaneous
  Country: US (occurrence: US)
  Receive Date: 20220902
  Receipt Date: 20220902
  Transmission Date: 20221027
  Serious: No
  Sender: FDA-Public Use
  Company Number: US-ABBVIE-22K-163-4390843-00

PATIENT
  Sex: Female

DRUGS (1)
  1. CREON [Suspect]
     Active Substance: PANCRELIPASE AMYLASE\PANCRELIPASE LIPASE\PANCRELIPASE PROTEASE
     Indication: Product used for unknown indication
     Route: 048
     Dates: start: 20220415

REACTIONS (5)
  - Dizziness [Not Recovered/Not Resolved]
  - Palpitations [Unknown]
  - Dry mouth [Unknown]
  - Tearfulness [Unknown]
  - Anxiety [Unknown]

NARRATIVE: CASE EVENT DATE: 20220401
